APPROVED DRUG PRODUCT: MINODYL
Active Ingredient: MINOXIDIL
Strength: 10MG
Dosage Form/Route: TABLET;ORAL
Application: A071534 | Product #001
Applicant: QUANTUM PHARMICS LTD
Approved: Mar 19, 1987 | RLD: No | RS: No | Type: DISCN